FAERS Safety Report 19274889 (Version 6)
Quarter: 2022Q3

REPORT INFORMATION
  Report Type: Report from Study
  Country: US (occurrence: US)
  Receive Date: 20210519
  Receipt Date: 20220906
  Transmission Date: 20221026
  Serious: Yes (Other)
  Sender: FDA-Public Use
  Company Number: US-TAKEDA-US201938118

PATIENT
  Sex: Female

DRUGS (1)
  1. HUMAN IMMUNOGLOBULIN G [Suspect]
     Active Substance: HUMAN IMMUNOGLOBULIN G
     Indication: Primary immunodeficiency syndrome
     Dosage: UNK
     Route: 065

REACTIONS (11)
  - Systemic lupus erythematosus [Unknown]
  - Nephrolithiasis [Unknown]
  - Parkinson^s disease [Unknown]
  - Colitis microscopic [Unknown]
  - Endodontic procedure [Unknown]
  - Weight decreased [Unknown]
  - Skin disorder [Unknown]
  - Fatigue [Unknown]
  - Diarrhoea [Unknown]
  - Nasopharyngitis [Unknown]
  - Gastrointestinal disorder [Unknown]
